FAERS Safety Report 8202176-7 (Version None)
Quarter: 2012Q1

REPORT INFORMATION
  Report Type: 
  Country: None (occurrence: None)
  Receive Date: 20120312
  Receipt Date: 20120305
  Transmission Date: 20120608
  Serious: Yes (Hospitalization)
  Sender: FDA-Public Use
  Company Number: US-BAYER-2012-022590

PATIENT
  Age: 31 Year
  Sex: Female

DRUGS (8)
  1. HYDROGEN PEROXIDE SOLUTION [Concomitant]
     Dosage: UNK
     Route: 061
     Dates: start: 20060922
  2. FERROUS GLUCONATE [Concomitant]
     Dosage: UNK
  3. YASMIN [Suspect]
     Route: 048
  4. KEFLEX [Concomitant]
     Dosage: 500 MG, TID
     Route: 048
     Dates: start: 20060922
  5. OGESTREL 0.5/50-28 [Concomitant]
     Dosage: UNK
  6. NEOSPORIN TOPICAL [Concomitant]
     Dosage: UNK
     Route: 061
     Dates: start: 20060922
  7. VICODIN [Concomitant]
     Dosage: UNK
     Dates: start: 20061215
  8. MULTI-VITAMIN [Concomitant]
     Dosage: UNK
     Dates: start: 20061215

REACTIONS (1)
  - DEEP VEIN THROMBOSIS [None]
